FAERS Safety Report 7735435-2 (Version None)
Quarter: 2011Q3

REPORT INFORMATION
  Report Type: 
  Country: None (occurrence: None)
  Receive Date: 20110907
  Receipt Date: 20110829
  Transmission Date: 20111222
  Serious: Yes (Other)
  Sender: FDA-Public Use
  Company Number: JP-BAXTER-2011BH024866

PATIENT
  Sex: Male

DRUGS (5)
  1. KOGENATE [Suspect]
     Route: 042
     Dates: start: 20110601, end: 20110601
  2. KOGENATE [Suspect]
     Indication: IMMUNE TOLERANCE INDUCTION
     Route: 042
     Dates: start: 20110601, end: 20110601
  3. FEIBA [Suspect]
     Indication: HAEMOSTASIS
     Route: 042
  4. KOGENATE [Suspect]
     Route: 042
  5. KOGENATE [Suspect]
     Route: 042

REACTIONS (1)
  - FACTOR VIII INHIBITION [None]
